FAERS Safety Report 5760296-0 (Version None)
Quarter: 2008Q2

REPORT INFORMATION
  Report Type: 
  Country: None (occurrence: None)
  Receive Date: 20080605
  Receipt Date: 20080527
  Transmission Date: 20081010
  Serious: Yes (Hospitalization, Disabling, Other)
  Sender: FDA-Public Use
  Company Number: US-PFIZER INC-2007098432

PATIENT
  Sex: Male
  Weight: 63.5 kg

DRUGS (1)
  1. CELEBREX [Suspect]
     Indication: ARTHRITIS
     Route: 048
     Dates: start: 20040127, end: 20040527

REACTIONS (3)
  - ARTHRITIS [None]
  - CEREBROVASCULAR ACCIDENT [None]
  - DEPRESSION [None]
